FAERS Safety Report 6899361-3 (Version None)
Quarter: 2010Q3

REPORT INFORMATION
  Report Type: 
  Country: None (occurrence: None)
  Receive Date: 20100803
  Receipt Date: 20090422
  Transmission Date: 20110219
  Serious: No
  Sender: FDA-Public Use
  Company Number: US-PFIZER INC-2009175248

PATIENT
  Sex: Male
  Weight: 96.599 kg

DRUGS (9)
  1. CAVERJECT [Suspect]
     Indication: ERECTILE DYSFUNCTION
     Dosage: 20 UG, UNK
     Route: 017
     Dates: start: 20060101
  2. TRICOR [Concomitant]
     Dosage: UNK
  3. LIPITOR [Concomitant]
     Dosage: UNK
  4. ZETIA [Concomitant]
     Dosage: UNK
  5. PLAVIX [Concomitant]
     Dosage: UNK
  6. PROTONIX [Concomitant]
     Dosage: UNK
  7. ALLOPURINOL [Concomitant]
     Dosage: UNK
  8. LASIX [Concomitant]
     Dosage: UNK
  9. POTASSIUM [Concomitant]
     Dosage: UNK

REACTIONS (1)
  - DRUG EFFECT DECREASED [None]
